FAERS Safety Report 9282883 (Version 1)
Quarter: 2013Q2

REPORT INFORMATION
  Report Type: Spontaneous
  Country: US (occurrence: US)
  Receive Date: 20130510
  Receipt Date: 20130510
  Transmission Date: 20140414
  Serious: Yes (Other)
  Sender: FDA-Public Use
  Company Number: US-BRISTOL-MYERS SQUIBB COMPANY-17328410

PATIENT
  Age: 70 Year
  Sex: Male

DRUGS (2)
  1. COUMADIN [Suspect]
     Indication: PULMONARY EMBOLISM
     Dosage: COUMADIN DOSE IS 5 MG/DAY ALTERNATING WITH 2.5MG/DAY.
     Dates: start: 20121002, end: 20130331
  2. COUMADIN [Suspect]
     Indication: THROMBOSIS
     Dosage: COUMADIN DOSE IS 5 MG/DAY ALTERNATING WITH 2.5MG/DAY.
     Dates: start: 20121002, end: 20130331

REACTIONS (1)
  - Intervertebral disc degeneration [Not Recovered/Not Resolved]
